FAERS Safety Report 5811962-X (Version None)
Quarter: 2008Q3

REPORT INFORMATION
  Report Type: 
  Country: None (occurrence: None)
  Receive Date: 20080714
  Receipt Date: 20080704
  Transmission Date: 20090109
  Serious: Yes (Hospitalization)
  Sender: FDA-Public Use
  Company Number: 083-21880-08070282

PATIENT
  Age: 76 Year
  Sex: Female
  Weight: 65 kg

DRUGS (5)
  1. REVLIMID [Suspect]
     Indication: MULTIPLE MYELOMA
     Dosage: 25 MG, 1 IN 1 D, ORAL
     Route: 048
     Dates: start: 20080318, end: 20080505
  2. AMLODIPINE [Concomitant]
  3. L-THYROXIN (LEVOTHYROXINE) [Concomitant]
  4. ASPIRIN [Concomitant]
  5. OXYCODONE HCL [Concomitant]

REACTIONS (2)
  - ANXIETY [None]
  - MALAISE [None]
